FAERS Safety Report 13505474 (Version 5)
Quarter: 2017Q3

REPORT INFORMATION
  Report Type: Report from Study
  Country: CA (occurrence: CA)
  Receive Date: 20170502
  Receipt Date: 20170802
  Transmission Date: 20171127
  Serious: Yes (Hospitalization, Other)
  Sender: FDA-Public Use
  Company Number: CA-ASTRAZENECA-2017SE41969

PATIENT
  Age: 79 Year
  Sex: Female
  Weight: 61.8 kg

DRUGS (8)
  1. ACETAMINOPHEN. [Concomitant]
     Active Substance: ACETAMINOPHEN
     Indication: DYSPNOEA
     Dosage: 5-7,5 MG EVENRY SIX HOUR AS REQUIRED
     Route: 048
     Dates: start: 20170330, end: 20170402
  2. SYMBICORT [Concomitant]
     Active Substance: BUDESONIDE\FORMOTEROL FUMARATE DIHYDRATE
     Indication: DYSPNOEA
     Route: 055
     Dates: start: 20170101
  3. SENNA [Concomitant]
     Active Substance: SENNA LEAF\SENNOSIDES\SENNOSIDES A AND B
     Indication: DYSPNOEA
     Dosage: 8,6 MG,AS REQUIRED
     Route: 048
     Dates: start: 20170307
  4. OXYCODONE [Concomitant]
     Active Substance: OXYCODONE
     Indication: DYSPNOEA
     Dosage: 5-7,5 MG EVENRY FOUR HOUR AS REQUIRED
     Route: 048
     Dates: start: 20170330, end: 20170402
  5. CAL+VIT [Concomitant]
     Indication: DYSPNOEA
     Dosage: 1 CAPSULE,DAILY
     Route: 048
     Dates: start: 20150915
  6. LYNPARZA [Suspect]
     Active Substance: OLAPARIB
     Indication: OVARIAN CANCER
     Route: 048
     Dates: start: 20170523, end: 20170619
  7. LYNPARZA [Suspect]
     Active Substance: OLAPARIB
     Indication: OVARIAN CANCER
     Route: 048
     Dates: start: 20170410, end: 20170418
  8. LOPROX [Concomitant]
     Active Substance: CICLOPIROX\CICLOPIROX OLAMINE
     Indication: DYSPNOEA
     Dosage: 1 PERCENT, TWO TIME A DAY
     Route: 061
     Dates: start: 20160108

REACTIONS (3)
  - Pancytopenia [Recovered/Resolved]
  - Pneumonia [Recovered/Resolved]
  - Pulmonary embolism [Recovered/Resolved]

NARRATIVE: CASE EVENT DATE: 20170329
